FAERS Safety Report 9571310 (Version 1)
Quarter: 2013Q3

REPORT INFORMATION
  Report Type: Spontaneous
  Country: US (occurrence: None)
  Receive Date: 20130927
  Receipt Date: 20130927
  Transmission Date: 20140515
  Serious: Yes (Other)
  Sender: FDA-Public Use
  Company Number: None

PATIENT
  Age: 3 Year
  Sex: Female
  Weight: 12.25 kg

DRUGS (1)
  1. SINGULAIR [Suspect]
     Route: 048
     Dates: start: 20130911, end: 20130924

REACTIONS (8)
  - Paranoia [None]
  - Crying [None]
  - Tremor [None]
  - Nightmare [None]
  - Enuresis [None]
  - Faecal incontinence [None]
  - Hallucination, visual [None]
  - Formication [None]
